FAERS Safety Report 9669457 (Version 1)
Quarter: 2013Q4

REPORT INFORMATION
  Report Type: Spontaneous
  Country: GB (occurrence: GB)
  Receive Date: 20131105
  Receipt Date: 20131105
  Transmission Date: 20140711
  Serious: Yes (Other)
  Sender: FDA-Public Use
  Company Number: GB-PFIZER INC-2013310922

PATIENT
  Sex: Female

DRUGS (4)
  1. DOXORUBICIN HCL [Suspect]
     Dosage: UNK
     Route: 064
  2. BLEOMYCIN [Suspect]
     Dosage: EVERY TWO WEEKS
     Route: 064
  3. VINBLASTINE [Suspect]
     Dosage: UNK
     Route: 064
  4. DACARBAZINE [Suspect]
     Dosage: UNK
     Route: 064

REACTIONS (2)
  - Maternal exposure during pregnancy [Unknown]
  - Jaundice neonatal [Unknown]
